FAERS Safety Report 25272661 (Version 1)
Quarter: 2025Q2

REPORT INFORMATION
  Report Type: Spontaneous
  Country: US (occurrence: None)
  Receive Date: 20250505
  Receipt Date: 20250505
  Transmission Date: 20250717
  Serious: Yes (Death)
  Sender: FDA-CTU
  Company Number: None

PATIENT
  Sex: Male

DRUGS (22)
  1. BOTOX [Suspect]
     Active Substance: ONABOTULINUMTOXINA
     Indication: Torticollis
     Dosage: OTHER FREQUENCY : EVERY 12 WEEKS;?
     Route: 030
  2. acetaminophen 325mg [Concomitant]
  3. AMLODIPINE [Concomitant]
     Active Substance: AMLODIPINE BESYLATE
  4. aspirin EC 81mg [Concomitant]
  5. BACITRACIN [Concomitant]
     Active Substance: BACITRACIN
  6. bisacodyl 10mg suppositories [Concomitant]
  7. cranberry capsules [Concomitant]
  8. FLEET ENEMA [Concomitant]
     Active Substance: SODIUM PHOSPHATE, DIBASIC\SODIUM PHOSPHATE, MONOBASIC
  9. folic acid 1 mg [Concomitant]
  10. Keppra 1000 mg [Concomitant]
  11. LEXAPRO [Concomitant]
     Active Substance: ESCITALOPRAM OXALATE
  12. LINZESS [Concomitant]
     Active Substance: LINACLOTIDE
  13. LIPITOR [Concomitant]
     Active Substance: ATORVASTATIN CALCIUM
  14. LITHIUM CARBONATE [Concomitant]
     Active Substance: LITHIUM CARBONATE
  15. LORATADINE [Concomitant]
     Active Substance: LORATADINE
  16. LORAZEPAM [Concomitant]
     Active Substance: LORAZEPAM
  17. METOPROLOL SUCCINATE [Concomitant]
     Active Substance: METOPROLOL SUCCINATE
  18. MIRALAX [Concomitant]
     Active Substance: POLYETHYLENE GLYCOL 3350
  19. VITAMINS [Concomitant]
     Active Substance: VITAMINS
  20. OMEPRAZOLE [Concomitant]
     Active Substance: OMEPRAZOLE
  21. TEGRETOL [Concomitant]
     Active Substance: CARBAMAZEPINE
  22. TRAZODONE [Concomitant]
     Active Substance: TRAZODONE HYDROCHLORIDE

REACTIONS (1)
  - Death [None]
